FAERS Safety Report 6409602-4 (Version None)
Quarter: 2009Q4

REPORT INFORMATION
  Report Type: 
  Country: None (occurrence: None)
  Receive Date: 20091019
  Receipt Date: 20091019
  Transmission Date: 20100525
  Serious: No
  Sender: FDA-Public Use
  Company Number: None

PATIENT
  Age: 44 Year
  Sex: Male

DRUGS (2)
  1. AUGMENTIN [Suspect]
     Dosage: 500/125 PO BID
     Route: 048
     Dates: start: 20080110, end: 20080124
  2. AUGMENTIN [Suspect]
     Dosage: 500/125 PO BID
     Route: 048
     Dates: start: 20080218, end: 20080228

REACTIONS (5)
  - CHOLESTASIS [None]
  - CHRONIC HEPATITIS [None]
  - HEPATOTOXICITY [None]
  - LIVER INJURY [None]
  - WEIGHT DECREASED [None]
